FAERS Safety Report 4346550-8 (Version None)
Quarter: 2004Q2

REPORT INFORMATION
  Report Type: 
  Country: None (occurrence: None)
  Receive Date: 20040426
  Receipt Date: 20040107
  Transmission Date: 20050107
  Serious: No
  Sender: FDA-Public Use
  Company Number: US-BRISTOL-MYERS SQUIBB COMPANY-12473443

PATIENT

DRUGS (2)
  1. TAXOL [Suspect]
  2. PARAPLATIN [Suspect]

REACTIONS (1)
  - PYREXIA [None]
